FAERS Safety Report 7553150-5 (Version None)
Quarter: 2011Q2

REPORT INFORMATION
  Report Type: 
  Country: None (occurrence: None)
  Receive Date: 20110616
  Receipt Date: 20110614
  Transmission Date: 20111010
  Serious: Yes (Hospitalization)
  Sender: FDA-Public Use
  Company Number: CA-BRISTOL-MYERS SQUIBB COMPANY-15834583

PATIENT
  Age: 55 Year
  Sex: Female
  Weight: 56 kg

DRUGS (10)
  1. ATIVAN [Concomitant]
     Indication: INSOMNIA
     Dates: start: 20110201
  2. AVAPRO [Concomitant]
     Indication: HYPERTENSION
     Route: 048
     Dates: start: 20100101
  3. IMODIUM [Concomitant]
     Indication: DIARRHOEA
     Dates: start: 20110416, end: 20110521
  4. ATIVAN [Concomitant]
     Indication: ANXIETY
     Dates: start: 20110201
  5. CLINDAMYCIN [Concomitant]
     Indication: ACNE
     Dosage: FORMULATION: CLINDAMYCIN1%
     Dates: start: 20110520
  6. MULTI-VITAMIN [Concomitant]
     Indication: VITAMIN SUPPLEMENTATION
     Route: 048
     Dates: start: 20110420
  7. PACLITAXEL [Suspect]
     Indication: BREAST CANCER
     Route: 042
     Dates: start: 20110415
  8. PANTOPRAZOLE SODIUM [Concomitant]
     Indication: DYSPEPSIA
     Route: 048
     Dates: start: 20110517
  9. BISMUTH SUBSALICYLATE [Concomitant]
     Indication: DYSPEPSIA
     Route: 048
     Dates: start: 20110513
  10. 1% HYDROCORTISONE CREAM [Concomitant]
     Indication: ACNE
     Dates: start: 20110520

REACTIONS (1)
  - BILIARY COLIC [None]
